FAERS Safety Report 9198520 (Version 2)
Quarter: 2013Q2

REPORT INFORMATION
  Report Type: Report from Study
  Country: US (occurrence: US)
  Receive Date: 20130329
  Receipt Date: 20130419
  Transmission Date: 20140414
  Serious: Yes (Death)
  Sender: FDA-Public Use
  Company Number: PHEH2013US007067

PATIENT
  Age: 50 Year
  Sex: Female

DRUGS (8)
  1. RECLAST [Suspect]
     Indication: OSTEOPOROSIS POSTMENOPAUSAL
     Dosage: UNK
     Route: 042
  2. KLONOPIN [Concomitant]
  3. LASIX [Concomitant]
  4. SYMBICORT [Concomitant]
  5. SPIRIVA [Concomitant]
  6. ATIVAN [Concomitant]
  7. PROTONIX [Concomitant]
  8. OXYCODON [Concomitant]

REACTIONS (1)
  - Lung neoplasm malignant [Fatal]
